FAERS Safety Report 7541987-8 (Version None)
Quarter: 2011Q2

REPORT INFORMATION
  Report Type: 
  Country: None (occurrence: None)
  Receive Date: 20110613
  Receipt Date: 20110606
  Transmission Date: 20111010
  Serious: Yes (Other)
  Sender: FDA-Public Use
  Company Number: US-BRISTOL-MYERS SQUIBB COMPANY-15806052

PATIENT
  Age: 38 Year
  Sex: Male

DRUGS (2)
  1. ETOPOSIDE [Suspect]
     Indication: AESTHESIONEUROBLASTOMA
     Dosage: DOSAGE: ON DAYS 1-3 AND 23-25
  2. CISPLATIN [Suspect]
     Indication: AESTHESIONEUROBLASTOMA
     Dosage: DOSAGE: ON DAY 1 AND 23

REACTIONS (3)
  - MUCOSAL INFLAMMATION [None]
  - FEBRILE NEUTROPENIA [None]
  - DERMATITIS [None]
